FAERS Safety Report 5061222-2 (Version None)
Quarter: 2006Q3

REPORT INFORMATION
  Report Type: 
  Country: None (occurrence: None)
  Receive Date: 20060725
  Receipt Date: 20060713
  Transmission Date: 20061208
  Serious: Yes (Other)
  Sender: FDA-Public Use
  Company Number: US-ROCHE-455562

PATIENT
  Age: 55 Year
  Sex: Male

DRUGS (5)
  1. PEGASYS [Suspect]
     Route: 058
     Dates: start: 20050615
  2. COPEGUS [Suspect]
     Route: 048
     Dates: start: 20050615
  3. PROCRIT [Suspect]
     Indication: DRUG USE FOR UNKNOWN INDICATION
     Route: 065
     Dates: start: 20060615
  4. ZOLOFT [Concomitant]
     Indication: ANXIETY
     Route: 048
  5. LUNESTA [Concomitant]
     Dates: start: 20060115

REACTIONS (2)
  - INSOMNIA [None]
  - VENOUS THROMBOSIS [None]
